FAERS Safety Report 15387506 (Version 1)
Quarter: 2018Q3

REPORT INFORMATION
  Report Type: Spontaneous
  Country: JP (occurrence: JP)
  Receive Date: 20180914
  Receipt Date: 20180914
  Transmission Date: 20181010
  Serious: Yes (Life-Threatening, Hospitalization)
  Sender: FDA-Public Use
  Company Number: PHHY2018JP093034

PATIENT
  Age: 76 Year
  Sex: Male

DRUGS (4)
  1. ISONIAZID. [Suspect]
     Active Substance: ISONIAZID
     Indication: INFECTION PROPHYLAXIS
     Dosage: 200 MG, ONCE/SINGLE
     Route: 065
  2. PREDNISOLONE. [Concomitant]
     Active Substance: PREDNISOLONE
     Indication: CHRONIC KIDNEY DISEASE
     Dosage: 5 MG, QD
     Route: 065
  3. ISONIAZID. [Suspect]
     Active Substance: ISONIAZID
     Indication: LATENT TUBERCULOSIS
     Dosage: 300 MG, QD
     Route: 065
  4. LOBENZARIT [Concomitant]
     Indication: CHRONIC KIDNEY DISEASE
     Dosage: 40 MG, QD
     Route: 065

REACTIONS (4)
  - Myalgia [Unknown]
  - Pyrexia [Unknown]
  - Rhabdomyolysis [Recovered/Resolved]
  - Petechiae [Unknown]
